FAERS Safety Report 24249155 (Version 1)
Quarter: 2024Q3

REPORT INFORMATION
  Report Type: Report from Study
  Country: CN (occurrence: CN)
  Receive Date: 20240826
  Receipt Date: 20240826
  Transmission Date: 20241017
  Serious: Yes (Other)
  Sender: JOHNSON AND JOHNSON
  Company Number: CN-JNJFOC-20240862603

PATIENT

DRUGS (1)
  1. REMICADE [Suspect]
     Active Substance: INFLIXIMAB
     Indication: Crohn^s disease
     Dosage: 0, 2, 6, AND 14 WEEKS OF TREATMENT
     Route: 041

REACTIONS (4)
  - Henoch-Schonlein purpura nephritis [Unknown]
  - Infusion related reaction [Unknown]
  - Psoriasis [Unknown]
  - Off label use [Unknown]
